FAERS Safety Report 16433947 (Version 4)
Quarter: 2019Q4

REPORT INFORMATION
  Report Type: Spontaneous
  Country: US (occurrence: US)
  Receive Date: 20190614
  Receipt Date: 20191120
  Transmission Date: 20200122
  Serious: Yes (Other)
  Sender: FDA-Public Use
  Company Number: US-ASTRAZENECA-2018SF25572

PATIENT
  Age: 17544 Day
  Sex: Male
  Weight: 79.4 kg

DRUGS (31)
  1. ATORVASTATIN [Concomitant]
     Active Substance: ATORVASTATIN
  2. OXYCONTIN [Concomitant]
     Active Substance: OXYCODONE HYDROCHLORIDE
  3. NEXIUM [Suspect]
     Active Substance: ESOMEPRAZOLE MAGNESIUM
     Indication: GASTROOESOPHAGEAL REFLUX DISEASE
     Route: 048
  4. NEXIUM [Suspect]
     Active Substance: ESOMEPRAZOLE MAGNESIUM
     Indication: GASTROOESOPHAGEAL REFLUX DISEASE
     Route: 048
     Dates: start: 201501, end: 201603
  5. CIALIS [Concomitant]
     Active Substance: TADALAFIL
  6. OXYCODONE [Concomitant]
     Active Substance: OXYCODONE
  7. FLUOCINONIDE. [Concomitant]
     Active Substance: FLUOCINONIDE
  8. CLONIDINE. [Concomitant]
     Active Substance: CLONIDINE
  9. BUDESONIDE. [Concomitant]
     Active Substance: BUDESONIDE
  10. CHLORZOXAZONE. [Concomitant]
     Active Substance: CHLORZOXAZONE
  11. IBUPROFEN. [Concomitant]
     Active Substance: IBUPROFEN
  12. VALSARTAN. [Concomitant]
     Active Substance: VALSARTAN
  13. ENDOCET [Concomitant]
     Active Substance: ACETAMINOPHEN\OXYCODONE HYDROCHLORIDE
  14. GLYCOPYRROLATE. [Concomitant]
     Active Substance: GLYCOPYRROLATE
  15. OXYCODONE [Concomitant]
     Active Substance: OXYCODONE
     Indication: PAIN
  16. ACETAMINOPHEN. [Concomitant]
     Active Substance: ACETAMINOPHEN
     Indication: PAIN
  17. TAMIFLU [Concomitant]
     Active Substance: OSELTAMIVIR PHOSPHATE
  18. GABAPENTIN. [Concomitant]
     Active Substance: GABAPENTIN
  19. AMOXICILLIN. [Concomitant]
     Active Substance: AMOXICILLIN
  20. VALSARTAN. [Concomitant]
     Active Substance: VALSARTAN
  21. DIAZEPAM. [Concomitant]
     Active Substance: DIAZEPAM
  22. OMEPRAZOLE. [Suspect]
     Active Substance: OMEPRAZOLE
     Indication: GASTROOESOPHAGEAL REFLUX DISEASE
     Route: 065
     Dates: start: 2010, end: 2016
  23. METHYLPREDNISOLONE. [Concomitant]
     Active Substance: METHYLPREDNISOLONE
  24. RANITIDINE. [Concomitant]
     Active Substance: RANITIDINE
     Dates: start: 2012
  25. NEXIUM [Suspect]
     Active Substance: ESOMEPRAZOLE MAGNESIUM
     Indication: GASTROOESOPHAGEAL REFLUX DISEASE
     Route: 048
     Dates: start: 2010, end: 2016
  26. VITAMIN D [Concomitant]
     Active Substance: VITAMIN D NOS
  27. MOVIPREP [Concomitant]
     Active Substance: ASCORBIC ACID\POLYETHYLENE GLYCOL 3350\POTASSIUM CHLORIDE\SODIUM ASCORBATE\SODIUM CHLORIDE\SODIUM SULFATE
  28. NEXIUM [Suspect]
     Active Substance: ESOMEPRAZOLE MAGNESIUM
     Indication: GASTROOESOPHAGEAL REFLUX DISEASE
     Route: 048
     Dates: start: 20140321, end: 201603
  29. PANTOPRAZOLE [Suspect]
     Active Substance: PANTOPRAZOLE
     Indication: GASTROOESOPHAGEAL REFLUX DISEASE
     Route: 065
     Dates: start: 2010, end: 2016
  30. HYDROCHLOROTHIAZIDE. [Concomitant]
     Active Substance: HYDROCHLOROTHIAZIDE
  31. CARISOPRODOL. [Concomitant]
     Active Substance: CARISOPRODOL

REACTIONS (5)
  - Chronic kidney disease [Not Recovered/Not Resolved]
  - Tubulointerstitial nephritis [Unknown]
  - End stage renal disease [Unknown]
  - Acute kidney injury [Unknown]
  - Renal failure [Unknown]

NARRATIVE: CASE EVENT DATE: 20160322
